FAERS Safety Report 4407324-2 (Version None)
Quarter: 2004Q3

REPORT INFORMATION
  Report Type: 
  Country: None (occurrence: None)
  Receive Date: 20040726
  Receipt Date: 20040702
  Transmission Date: 20050211
  Serious: Yes (Hospitalization)
  Sender: FDA-Public Use
  Company Number: FR-BRISTOL-MYERS SQUIBB COMPANY-12631115

PATIENT
  Age: 31 Year
  Sex: Male

DRUGS (2)
  1. MODECATE INJ [Suspect]
     Indication: ABNORMAL BEHAVIOUR
     Dosage: DISCONTINUED FOR SEVERAL YEARS
     Route: 030
  2. MODECATE INJ [Suspect]
     Indication: AUTISM
     Dosage: DISCONTINUED FOR SEVERAL YEARS
     Route: 030

REACTIONS (2)
  - URINARY RETENTION [None]
  - URINARY TRACT DISORDER [None]
